FAERS Safety Report 6051364-7 (Version None)
Quarter: 2009Q1

REPORT INFORMATION
  Report Type: 
  Country: None (occurrence: None)
  Receive Date: 20090126
  Receipt Date: 20090114
  Transmission Date: 20090719
  Serious: Yes (Other)
  Sender: FDA-Public Use
  Company Number: JP-PFIZER INC-2008158065

PATIENT

DRUGS (2)
  1. ZYVOX [Suspect]
     Indication: STAPHYLOCOCCAL INFECTION
     Dosage: UNK
     Dates: start: 20080321, end: 20080401
  2. ZYVOX [Suspect]
     Indication: SEPSIS

REACTIONS (2)
  - DELIRIUM [None]
  - HYPONATRAEMIA [None]
